FAERS Safety Report 4580803-3 (Version None)
Quarter: 2005Q1

REPORT INFORMATION
  Report Type: 
  Country: None (occurrence: None)
  Receive Date: 20050214
  Receipt Date: 20040607
  Transmission Date: 20050727
  Serious: No
  Sender: FDA-Public Use
  Company Number: US-GLAXOSMITHKLINE-A0513609A

PATIENT
  Age: 56 Year
  Sex: Female

DRUGS (4)
  1. LAMICTAL [Suspect]
     Indication: EPILEPSY
     Dosage: 200MG TWICE PER DAY
     Route: 048
     Dates: start: 20040201, end: 20040701
  2. KEPPRA [Concomitant]
     Dosage: 150MG TWICE PER DAY
  3. NEXIUM [Concomitant]
  4. ALEVE [Concomitant]

REACTIONS (9)
  - CONFUSIONAL STATE [None]
  - COUGH [None]
  - DYSPHAGIA [None]
  - FALL [None]
  - GAIT DISTURBANCE [None]
  - GINGIVAL RECESSION [None]
  - HEADACHE [None]
  - HERPES SIMPLEX [None]
  - STOMATITIS [None]
